FAERS Safety Report 8511470-1 (Version None)
Quarter: 2012Q2

REPORT INFORMATION
  Report Type: 
  Country: None (occurrence: None)
  Receive Date: 20120406
  Receipt Date: 20100504
  Transmission Date: 20120825
  Serious: Yes (Death)
  Sender: FDA-Public Use
  Company Number: PHHY2010US27667

PATIENT
  Age: 59 Year
  Sex: Male
  Weight: 78.9 kg

DRUGS (7)
  1. TASIGNA [Suspect]
     Indication: GASTROINTESTINAL STROMAL TUMOUR
     Dosage: 400 MG, BID, ORAL
     Route: 048
     Dates: start: 20100203
  2. DEXAMETHASONE [Concomitant]
  3. GLUCOPHAGE [Concomitant]
  4. LEVOTHYROXINE SODIUM [Concomitant]
  5. TRICOR [Concomitant]
  6. LESCOL [Concomitant]
  7. LISINOPRIL [Concomitant]

REACTIONS (6)
  - RETROPERITONEAL LYMPHADENOPATHY [None]
  - LYMPHADENOPATHY [None]
  - NEOPLASM MALIGNANT [None]
  - BLOOD PRESSURE SYSTOLIC INCREASED [None]
  - ASCITES [None]
  - GASTROINTESTINAL STROMAL TUMOUR [None]
